FAERS Safety Report 9414461 (Version 1)
Quarter: 2013Q3

REPORT INFORMATION
  Report Type: Spontaneous
  Country: BR (occurrence: BR)
  Receive Date: 20130723
  Receipt Date: 20130723
  Transmission Date: 20140515
  Serious: Yes (Other)
  Sender: FDA-Public Use
  Company Number: BR-ROCHE-1238263

PATIENT
  Sex: 0

DRUGS (2)
  1. ZELBORAF [Suspect]
     Indication: PRODUCT USED FOR UNKNOWN INDICATION
     Route: 065
     Dates: start: 201303
  2. ZELBORAF [Suspect]
     Dosage: DOSE REDUCED
     Route: 065

REACTIONS (5)
  - Rash [Unknown]
  - Photosensitivity reaction [Unknown]
  - Keratoacanthoma [Unknown]
  - Arthralgia [Unknown]
  - Toxicity to various agents [Recovered/Resolved]
